FAERS Safety Report 7515442-5 (Version None)
Quarter: 2011Q2

REPORT INFORMATION
  Report Type: 
  Country: None (occurrence: None)
  Receive Date: 20110601
  Receipt Date: 20110521
  Transmission Date: 20111010
  Serious: Yes (Other)
  Sender: FDA-Public Use
  Company Number: AR-SANOFI-AVENTIS-2011SA018418

PATIENT
  Sex: Female

DRUGS (13)
  1. FUROSEMIDE [Concomitant]
  2. SIMVASTATIN [Concomitant]
  3. RANITIDINA [Concomitant]
  4. DRONEDARONE HCL [Suspect]
     Indication: ATRIAL FIBRILLATION
     Route: 048
     Dates: start: 20110322, end: 20110324
  5. INSULIN [Concomitant]
     Route: 058
  6. LEVOTHYROXINE SODIUM [Concomitant]
  7. ENALAPRIL [Concomitant]
  8. CLOPIDOGREL [Concomitant]
  9. ASPIRIN [Concomitant]
     Route: 048
  10. DIGOXIN [Concomitant]
  11. CARVEDILOL [Concomitant]
  12. ESPIRONOLACTONA [Concomitant]
  13. ACENOCOUMAROL [Concomitant]
     Dosage: 14 MG WEEKLY
     Route: 048

REACTIONS (1)
  - RENAL FAILURE ACUTE [None]
